FAERS Safety Report 19581666 (Version 2)
Quarter: 2021Q3

REPORT INFORMATION
  Report Type: Spontaneous
  Country: JP (occurrence: JP)
  Receive Date: 20210720
  Receipt Date: 20210806
  Transmission Date: 20211014
  Serious: Yes (Hospitalization)
  Sender: FDA-Public Use
  Company Number: NVSJ2021JP010755

PATIENT
  Age: 70 Year
  Sex: Male

DRUGS (1)
  1. BICALUTAMIDE TABLETS [Suspect]
     Active Substance: BICALUTAMIDE
     Indication: PROSTATE CANCER
     Dosage: UNK
     Route: 048

REACTIONS (3)
  - Dysphagia [Unknown]
  - Concomitant disease aggravated [Unknown]
  - Emphysema [Unknown]
